FAERS Safety Report 6452675-3 (Version None)
Quarter: 2009Q4

REPORT INFORMATION
  Report Type: 
  Country: None (occurrence: None)
  Receive Date: 20091124
  Receipt Date: 20091116
  Transmission Date: 20100525
  Serious: Yes (Hospitalization)
  Sender: FDA-Public Use
  Company Number: US-ELI_LILLY_AND_COMPANY-US200911005753

PATIENT
  Sex: Female

DRUGS (22)
  1. BYETTA [Suspect]
     Indication: TYPE 2 DIABETES MELLITUS
     Dosage: 5 UG, 2/D
     Route: 058
     Dates: start: 20050101, end: 20050101
  2. BYETTA [Suspect]
     Dosage: 10 UG, 2/D
     Route: 058
     Dates: start: 20050101
  3. CLORAZEPATE DIPOTASSIUM [Concomitant]
     Indication: ANXIETY
     Dosage: 3.75 MG, UNKNOWN
     Route: 065
  4. PRILOSEC [Concomitant]
     Indication: GASTROOESOPHAGEAL REFLUX DISEASE
     Dosage: 20 MG, DAILY (1/D)
     Route: 065
  5. ESTRADIOL [Concomitant]
     Indication: HORMONE REPLACEMENT THERAPY
     Dosage: 1 MG, DAILY (1/D)
     Route: 065
  6. ALLEGRA [Concomitant]
     Indication: HYPERSENSITIVITY
     Dosage: 180 MG, DAILY (1/D)
     Route: 065
  7. SYNTHROID [Concomitant]
     Indication: THYROID DISORDER
     Dosage: 200 MG, DAILY (1/D)
     Route: 065
  8. SOTALOL HCL [Concomitant]
     Indication: CARDIAC DISORDER
     Dosage: 240 MG, DAILY (1/D)
     Route: 065
  9. EFFEXOR [Concomitant]
     Indication: ANXIETY
     Dosage: 225 MG, DAILY (1/D)
     Route: 065
  10. LIPITOR [Concomitant]
     Indication: BLOOD CHOLESTEROL
     Dosage: 80 MG, DAILY (1/D)
     Route: 065
  11. ASPIRIN [Concomitant]
     Dosage: 81 MG, DAILY (1/D)
     Route: 065
  12. GUAIFENESIN [Concomitant]
     Indication: HYPERSENSITIVITY
     Dosage: UNK, UNKNOWN
     Route: 065
  13. ALBUTEROL [Concomitant]
     Indication: ASTHMA
     Dosage: UNK, UNKNOWN
     Route: 065
  14. JANUVIA [Concomitant]
     Indication: TYPE 2 DIABETES MELLITUS
     Dosage: 25 MG, DAILY (1/D)
     Route: 065
     Dates: start: 20090101
  15. LASIX [Concomitant]
     Dosage: UNK, UNKNOWN
     Route: 065
     Dates: end: 20090101
  16. VITAMIN B-12 [Concomitant]
     Dosage: 1000 MG, DAILY (1/D)
     Route: 065
  17. VITAMIN E [Concomitant]
     Dosage: 1000 MG, DAILY (1/D)
     Route: 065
  18. VITAMIN D [Concomitant]
     Dosage: 1200 MG, DAILY (1/D)
     Route: 065
  19. ASCORBIC ACID [Concomitant]
     Dosage: 1000 MG, DAILY (1/D)
     Route: 065
  20. VITAMIN B COMPLEX CAP [Concomitant]
     Dosage: UNK, DAILY (1/D)
     Route: 065
  21. FISH OIL [Concomitant]
     Dosage: 1000 MG, DAILY (1/D)
     Route: 065
  22. GLUCOPHAGE [Concomitant]
     Indication: TYPE 2 DIABETES MELLITUS
     Dosage: UNK, UNKNOWN
     Route: 065

REACTIONS (8)
  - COUGH [None]
  - DIARRHOEA [None]
  - HEART ALTERNATION [None]
  - HEART RATE INCREASED [None]
  - HYPOVENTILATION [None]
  - PNEUMONIA [None]
  - THROAT IRRITATION [None]
  - URINE OUTPUT INCREASED [None]
